FAERS Safety Report 8732596 (Version 2)
Quarter: 2012Q4

REPORT INFORMATION
  Report Type: 
  Country: US (occurrence: US)
  Receive Date: 20120820
  Receipt Date: 20121108
  Transmission Date: 20130627
  Serious: Yes (Hospitalization)
  Sender: FDA-Public Use
  Company Number: US-ACTELION-A-US2008-20873

PATIENT
  Age: 36 Year
  Sex: Male

DRUGS (7)
  1. TRACLEER [Suspect]
     Indication: PULMONARY ARTERIAL HYPERTENSION
     Dosage: 62.5 mg, bid
     Route: 048
     Dates: start: 20071121, end: 20121029
  2. PREDNISONE [Concomitant]
  3. COUMADIN [Concomitant]
  4. METFORMIN [Concomitant]
  5. LASIX [Concomitant]
  6. COMBIVENT [Concomitant]
  7. FLOVENT [Concomitant]

REACTIONS (25)
  - Pneumonia [Recovering/Resolving]
  - Haemorrhage [Unknown]
  - Sinusitis [Recovering/Resolving]
  - Scrotal oedema [Recovering/Resolving]
  - Fluid retention [Recovered/Resolved]
  - Acute respiratory failure [Recovered/Resolved with Sequelae]
  - Fluid overload [Unknown]
  - Dyspnoea [Recovered/Resolved with Sequelae]
  - Tracheostomy [Recovered/Resolved with Sequelae]
  - Endotracheal intubation [Recovered/Resolved with Sequelae]
  - Mechanical ventilation [Recovered/Resolved with Sequelae]
  - Cellulitis [Recovering/Resolving]
  - Hypoxia [Recovered/Resolved with Sequelae]
  - Respiratory acidosis [Recovered/Resolved with Sequelae]
  - Pyrexia [Recovering/Resolving]
  - Sinus tachycardia [Recovered/Resolved with Sequelae]
  - Oxygen saturation decreased [Recovered/Resolved with Sequelae]
  - PCO2 increased [Recovered/Resolved with Sequelae]
  - Oedema [Recovered/Resolved]
  - Atelectasis [None]
  - QRS axis abnormal [None]
  - Electrocardiogram ST-T change [None]
  - Weaning failure [None]
  - Catheter site haemorrhage [None]
  - Urethral haemorrhage [None]
